FAERS Safety Report 8365080-X (Version None)
Quarter: 2012Q1

REPORT INFORMATION
  Report Type: 
  Country: None (occurrence: None)
  Receive Date: 20120323
  Receipt Date: 20111207
  Transmission Date: 20120608
  Serious: Yes (Hospitalization, Other)
  Sender: FDA-Public Use
  Company Number: 163-21880-11112297

PATIENT
  Age: 67 Year
  Sex: Female

DRUGS (2)
  1. REVLIMID [Suspect]
     Indication: MULTIPLE MYELOMA
     Dosage: 15 MG, DAILY AT BEDTIME FOR 14 DAYS, PO
     Route: 048
     Dates: start: 20111102, end: 20111115
  2. REVLIMID [Suspect]

REACTIONS (4)
  - HERPES ZOSTER [None]
  - ASTHENIA [None]
  - URINARY TRACT INFECTION [None]
  - MYALGIA [None]
